FAERS Safety Report 17849962 (Version 1)
Quarter: 2020Q2

REPORT INFORMATION
  Report Type: Spontaneous
  Country: SE (occurrence: SE)
  Receive Date: 20200602
  Receipt Date: 20200602
  Transmission Date: 20200714
  Serious: Yes (Life-Threatening)
  Sender: FDA-Public Use
  Company Number: SE-TEVA-2020-SE-1242769

PATIENT
  Age: 33 Year
  Sex: Female
  Weight: 65 kg

DRUGS (1)
  1. OXYCODONE [Suspect]
     Active Substance: OXYCODONE
     Indication: FOOT OPERATION
     Dosage: IF NECESSARY 4 TIMES / DAILY (TOOK ONE FOR THE EVENING)
     Dates: start: 20200421, end: 20200508

REACTIONS (2)
  - Suicidal ideation [Recovered/Resolved with Sequelae]
  - Dissociation [Recovered/Resolved with Sequelae]

NARRATIVE: CASE EVENT DATE: 202005
